FAERS Safety Report 9246282 (Version 1)
Quarter: 2013Q2

REPORT INFORMATION
  Report Type: Spontaneous
  Country: KR (occurrence: KR)
  Receive Date: 20130422
  Receipt Date: 20130422
  Transmission Date: 20140414
  Serious: Yes (Other)
  Sender: FDA-Public Use
  Company Number: KR-BANPHARM-20131195

PATIENT
  Age: 68 Year
  Sex: Male
  Weight: 65 kg

DRUGS (9)
  1. VALPROIC ACID UNKNOWN PRODUCT [Suspect]
     Indication: CONVULSION
     Dosage: 750 MG, Q 12 HOUR,
     Route: 042
  2. ERTAPENEM [Interacting]
     Dosage: 1,000 MG Q 24 H,
     Route: 042
  3. CARBAMAZEPINE [Concomitant]
  4. FERROUS SULFATE [Concomitant]
  5. LOVASTATIN [Concomitant]
  6. DOCUSATE [Concomitant]
  7. ACETAMINOPHEN [Concomitant]
  8. INSULIN [Concomitant]
  9. VANCOMYCIN [Concomitant]

REACTIONS (4)
  - Convulsion [Recovered/Resolved]
  - Anticonvulsant drug level below therapeutic [Unknown]
  - Drug interaction [Unknown]
  - Rash [Unknown]
